FAERS Safety Report 5324467-X (Version None)
Quarter: 2007Q2

REPORT INFORMATION
  Report Type: 
  Country: None (occurrence: None)
  Receive Date: 20070514
  Receipt Date: 20070504
  Transmission Date: 20071010
  Serious: Yes (Other)
  Sender: FDA-Public Use
  Company Number: US-PFIZER INC-2005082470

PATIENT
  Sex: Male
  Weight: 99.8 kg

DRUGS (5)
  1. VIAGRA [Suspect]
     Indication: ERECTILE DYSFUNCTION
     Dosage: TEXT:HALF OF 100MG TABLET
     Route: 048
     Dates: start: 20031001, end: 20051001
  2. ALBUTEROL [Concomitant]
  3. IBUPROFEN [Concomitant]
     Dates: start: 19990901, end: 20030301
  4. CITALOPRAM HYDROBROMIDE [Concomitant]
  5. ALL OTHER THERAPEUTIC PRODUCTS [Concomitant]
     Route: 065

REACTIONS (1)
  - RETINAL DYSTROPHY [None]
